FAERS Safety Report 12072315 (Version 1)
Quarter: 2016Q1

REPORT INFORMATION
  Report Type: Report from Study
  Country: DE (occurrence: DE)
  Receive Date: 20160212
  Receipt Date: 20160212
  Transmission Date: 20160526
  Serious: Yes (Other)
  Sender: FDA-Public Use
  Company Number: PHHY2013DE088418

PATIENT

DRUGS (1)
  1. ILARIS [Suspect]
     Active Substance: CANAKINUMAB
     Indication: CRYOPYRIN ASSOCIATED PERIODIC SYNDROME
     Dosage: UNK
     Route: 058
     Dates: start: 20120501

REACTIONS (12)
  - Pyrexia [Unknown]
  - Pyrexia [Recovered/Resolved]
  - Diarrhoea [Recovered/Resolved]
  - Ear pain [Recovered/Resolved]
  - Nasopharyngitis [Recovered/Resolved]
  - Acne [Recovered/Resolved]
  - Dysphonia [Not Recovered/Not Resolved]
  - Rash generalised [Recovered/Resolved]
  - Oropharyngeal pain [Recovered/Resolved]
  - Rhinitis [Recovered/Resolved]
  - Eye inflammation [Recovered/Resolved]
  - Otitis media [Recovered/Resolved]

NARRATIVE: CASE EVENT DATE: 20130401
